FAERS Safety Report 15286985 (Version 2)
Quarter: 2018Q3

REPORT INFORMATION
  Report Type: Other
  Country: JP (occurrence: JP)
  Receive Date: 20180816
  Receipt Date: 20180817
  Transmission Date: 20181010
  Serious: Yes (Other)
  Sender: FDA-Public Use
  Company Number: JP-LUPIN PHARMACEUTICALS INC.-2018-00681

PATIENT
  Age: 44 Year
  Sex: Male
  Weight: 33 kg

DRUGS (13)
  1. LEVOFLOXACIN TABLETS [Suspect]
     Active Substance: LEVOFLOXACIN
     Indication: PNEUMONIA
     Dosage: UNK
     Route: 065
     Dates: start: 20171222, end: 20171223
  2. AMBROXOL HYDROCHLORIDE [Concomitant]
     Active Substance: AMBROXOL HYDROCHLORIDE
     Indication: PRODUCT USED FOR UNKNOWN INDICATION
     Dosage: 45 MG, QD AFTER THE BREAKFAST
     Route: 065
  3. ENTERON                            /00081601/ [Concomitant]
     Active Substance: FURAZOLIDONE
     Indication: PRODUCT USED FOR UNKNOWN INDICATION
     Dosage: 3 G, TID
     Route: 065
  4. SHINLUCK [Concomitant]
     Active Substance: SODIUM PICOSULFATE
     Indication: PRODUCT USED FOR UNKNOWN INDICATION
     Dosage: UNK, 2 TABLETS AFTER 2 DINNERS
     Route: 065
  5. CLARITHROMYCIN. [Concomitant]
     Active Substance: CLARITHROMYCIN
     Indication: PRODUCT USED FOR UNKNOWN INDICATION
     Dosage: 1 DF, QD AFTER THE DINNER
     Route: 065
  6. ISOPRINOSINE [Concomitant]
     Active Substance: INOSINE PRANOBEX
     Indication: PRODUCT USED FOR UNKNOWN INDICATION
     Dosage: 6 TABLETS AFTER 3 MEALS
     Route: 065
  7. SUCRALFATE. [Concomitant]
     Active Substance: SUCRALFATE
     Indication: PRODUCT USED FOR UNKNOWN INDICATION
     Dosage: 3 BAGS AFTER 3 MEALS
     Route: 065
  8. LANSOPRAZOLE. [Concomitant]
     Active Substance: LANSOPRAZOLE
     Indication: PRODUCT USED FOR UNKNOWN INDICATION
     Dosage: 15 MG, QD AFTER THE DINNER
     Route: 065
  9. ALFAROL [Concomitant]
     Active Substance: ALFACALCIDOL
     Indication: PRODUCT USED FOR UNKNOWN INDICATION
     Dosage: 1 ?G, 2 BAGS AFTER THE BREAKFAST
     Route: 065
  10. CARBAMAZEPINE. [Concomitant]
     Active Substance: CARBAMAZEPINE
     Indication: PRODUCT USED FOR UNKNOWN INDICATION
     Dosage: 300 MG, TID AFTER 3 MEALS
     Route: 065
  11. PHENOBARBITAL. [Concomitant]
     Active Substance: PHENOBARBITAL
     Indication: PRODUCT USED FOR UNKNOWN INDICATION
     Dosage: 60 MG, TID AFTER 3 MEALS
     Route: 065
  12. CARBOCYSTEINE [Concomitant]
     Active Substance: CARBOCYSTEINE
     Indication: PRODUCT USED FOR UNKNOWN INDICATION
     Dosage: 6 TABLETS AFTER 3 MEALS
     Route: 065
  13. DANTRIUM [Concomitant]
     Active Substance: DANTROLENE SODIUM
     Indication: PRODUCT USED FOR UNKNOWN INDICATION
     Dosage: 25 MG, TID AFTER 3 MEALS
     Route: 065

REACTIONS (1)
  - Drug eruption [Recovered/Resolved]

NARRATIVE: CASE EVENT DATE: 20171222
